FAERS Safety Report 19383972 (Version 2)
Quarter: 2021Q2

REPORT INFORMATION
  Report Type: Spontaneous
  Country: US (occurrence: US)
  Receive Date: 20210608
  Receipt Date: 20210614
  Transmission Date: 20210717
  Serious: No
  Sender: FDA-Public Use
  Company Number: US-SA-2021SA186133

PATIENT
  Sex: Female

DRUGS (1)
  1. DUPIXENT [Suspect]
     Active Substance: DUPILUMAB
     Indication: ECZEMA NUMMULAR
     Dosage: 300 MG, QOW
     Route: 058

REACTIONS (4)
  - Product use in unapproved indication [Unknown]
  - Skin wrinkling [Recovering/Resolving]
  - Injection site pain [Recovering/Resolving]
  - Product preparation error [Recovering/Resolving]
